FAERS Safety Report 23336185 (Version 1)
Quarter: 2023Q4

REPORT INFORMATION
  Report Type: Spontaneous
  Country: FR (occurrence: None)
  Receive Date: 20231225
  Receipt Date: 20231225
  Transmission Date: 20240110
  Serious: Yes (Hospitalization, Other)
  Sender: FDA-Public Use
  Company Number: 2023A288821

PATIENT
  Sex: Male

DRUGS (1)
  1. DAPAGLIFLOZIN [Suspect]
     Active Substance: DAPAGLIFLOZIN
     Indication: Cardiac failure
     Route: 048
     Dates: end: 202312

REACTIONS (3)
  - Ketoacidosis [Recovered/Resolved]
  - Cardiac failure [Recovered/Resolved]
  - Chronic kidney disease [Unknown]
